FAERS Safety Report 7655628 (Version 2)
Quarter: 2013Q3

REPORT INFORMATION
  Report Type: Report from Study
  Country: US (occurrence: US)
  Receive Date: 20101103
  Receipt Date: 20130731
  Transmission Date: 20140515
  Serious: Yes (Hospitalization)
  Sender: FDA-Public Use
  Company Number: PHHO2003US01821

PATIENT
  Age: 80 Year
  Sex: Male
  Weight: 90.9 kg

DRUGS (4)
  1. GLEEVEC [Suspect]
     Indication: GASTROINTESTINAL STROMAL TUMOUR
     Dosage: 400 MG, QD
     Route: 048
     Dates: start: 20000816
  2. VASOTEC [Concomitant]
  3. MULTIVITAMINS AND IRON [Concomitant]
  4. COUMADIN [Concomitant]

REACTIONS (3)
  - Adenocarcinoma [Recovering/Resolving]
  - Second primary malignancy [Recovering/Resolving]
  - Pleural effusion [Recovering/Resolving]
